FAERS Safety Report 7817044-X (Version None)
Quarter: 2011Q4

REPORT INFORMATION
  Report Type: 
  Country: None (occurrence: None)
  Receive Date: 20111014
  Receipt Date: 20111014
  Transmission Date: 20120403
  Serious: Yes (Other)
  Sender: FDA-Public Use
  Company Number: None

PATIENT
  Age: 64 Year
  Sex: Female
  Weight: 61.2356 kg

DRUGS (1)
  1. LEVAQUIN [Suspect]
     Indication: PNEUMONIA
     Dosage: 1 TABLET 1/DAY MOUTH  TOOK ONLY ONE PILL
     Route: 048
     Dates: start: 20110709

REACTIONS (5)
  - CONFUSIONAL STATE [None]
  - VISUAL IMPAIRMENT [None]
  - SCREAMING [None]
  - NERVOUS SYSTEM DISORDER [None]
  - DIZZINESS [None]
